FAERS Safety Report 8592278-8 (Version None)
Quarter: 2012Q3

REPORT INFORMATION
  Report Type: 
  Country: None (occurrence: None)
  Receive Date: 20120814
  Receipt Date: 20120810
  Transmission Date: 20120928
  Serious: Yes (Hospitalization)
  Sender: FDA-Public Use
  Company Number: US-AMGEN-USASP2012050615

PATIENT
  Age: 48 Year
  Sex: Female

DRUGS (1)
  1. ENBREL [Suspect]
     Indication: RHEUMATOID ARTHRITIS
     Dosage: UNK UNK, QWK
     Route: 058
     Dates: end: 20070101

REACTIONS (5)
  - JOINT ARTHROPLASTY [None]
  - GALLBLADDER DISORDER [None]
  - DRUG EFFECT DECREASED [None]
  - INJECTION SITE PAIN [None]
  - SHOULDER ARTHROPLASTY [None]
